FAERS Safety Report 15764596 (Version 1)
Quarter: 2018Q4

REPORT INFORMATION
  Report Type: Spontaneous
  Country: US (occurrence: US)
  Receive Date: 20181227
  Receipt Date: 20181227
  Transmission Date: 20190205
  Serious: Yes (Hospitalization, Other)
  Sender: FDA-Public Use
  Company Number: US-EMD SERONO-7084355

PATIENT
  Sex: Female

DRUGS (2)
  1. REBIF [Suspect]
     Active Substance: INTERFERON BETA-1A
     Indication: MULTIPLE SCLEROSIS
     Route: 058
     Dates: start: 20050325
  2. REBIF [Suspect]
     Active Substance: INTERFERON BETA-1A
     Route: 058

REACTIONS (9)
  - Cartilage injury [Recovered/Resolved]
  - Incision site cellulitis [Not Recovered/Not Resolved]
  - Joint injury [Unknown]
  - Lymphadenitis [Recovered/Resolved]
  - Decreased immune responsiveness [Unknown]
  - Scar [Not Recovered/Not Resolved]
  - Fall [Unknown]
  - Arthritis bacterial [Unknown]
  - Cartilage injury [Unknown]

NARRATIVE: CASE EVENT DATE: 2008
